FAERS Safety Report 6670396-9 (Version None)
Quarter: 2010Q2

REPORT INFORMATION
  Report Type: 
  Country: None (occurrence: None)
  Receive Date: 20100407
  Receipt Date: 20100331
  Transmission Date: 20101027
  Serious: Yes (Other)
  Sender: FDA-Public Use
  Company Number: US-BIOGENIDEC-2005BI003752

PATIENT
  Age: 45 Year
  Sex: Female

DRUGS (3)
  1. AVONEX [Suspect]
     Indication: MULTIPLE SCLEROSIS
     Route: 030
     Dates: start: 19970101
  2. AVONEX [Suspect]
     Route: 030
     Dates: end: 20050103
  3. AVONEX [Suspect]
     Route: 030
     Dates: start: 20091007

REACTIONS (3)
  - BREAST CANCER [None]
  - CONVULSION [None]
  - INFLUENZA LIKE ILLNESS [None]
